FAERS Safety Report 11294334 (Version 1)
Quarter: 2015Q3

REPORT INFORMATION
  Report Type: Spontaneous
  Country: US (occurrence: US)
  Receive Date: 20150722
  Receipt Date: 20150722
  Transmission Date: 20151125
  Serious: No
  Sender: FDA-Public Use
  Company Number: US-ELI_LILLY_AND_COMPANY-US200805002456

PATIENT
  Sex: Female

DRUGS (2)
  1. EVISTA [Suspect]
     Active Substance: RALOXIFENE HYDROCHLORIDE
     Indication: OSTEOPENIA
     Dosage: 60 MG, DAILY (1/D)
     Dates: start: 200712
  2. ESTROGENS [Concomitant]
     Active Substance: ESTROGENS
     Dosage: 0.5 MG, DAILY (1/D)
     Dates: end: 200802

REACTIONS (4)
  - Burning sensation [Not Recovered/Not Resolved]
  - Hot flush [Not Recovered/Not Resolved]
  - Night sweats [Not Recovered/Not Resolved]
  - Muscle spasms [Not Recovered/Not Resolved]

NARRATIVE: CASE EVENT DATE: 200804
